FAERS Safety Report 25455361 (Version 1)
Quarter: 2025Q2

REPORT INFORMATION
  Report Type: Spontaneous
  Country: US (occurrence: US)
  Receive Date: 20250619
  Receipt Date: 20250619
  Transmission Date: 20250717
  Serious: No
  Sender: STRIDES
  Company Number: US-STRIDES ARCOLAB LIMITED-2025SP005581

PATIENT
  Age: 72 Year
  Sex: Female

DRUGS (3)
  1. HYDRALAZINE HYDROCHLORIDE [Suspect]
     Active Substance: HYDRALAZINE HYDROCHLORIDE
     Indication: Hypertension
     Route: 065
  2. IRON [Suspect]
     Active Substance: IRON
     Indication: Mineral supplementation
     Route: 065
  3. APIXABAN [Concomitant]
     Active Substance: APIXABAN
     Indication: Atrial fibrillation
     Route: 065

REACTIONS (2)
  - Gastrointestinal tract mucosal pigmentation [Not Recovered/Not Resolved]
  - Gastrointestinal tract mucosal pigmentation [Not Recovered/Not Resolved]
